FAERS Safety Report 22222759 (Version 1)
Quarter: 2023Q2

REPORT INFORMATION
  Report Type: Other
  Country: None (occurrence: US)
  Receive Date: 20230418
  Receipt Date: 20230418
  Transmission Date: 20230721
  Serious: Yes (Hospitalization, Other)
  Sender: FDA-Public Use
  Company Number: US-BIOLOGICAL E. LTD-2140501

PATIENT
  Age: 84 Year
  Sex: Male
  Weight: 97 kg

DRUGS (3)
  1. HEPARIN SODIUM [Suspect]
     Active Substance: HEPARIN SODIUM
     Indication: Aneurysm repair
     Route: 065
  2. ANDEXANET ALFA [Interacting]
     Active Substance: ANDEXANET ALFA
     Route: 040
  3. APIXABAN [Concomitant]
     Active Substance: APIXABAN
     Route: 065

REACTIONS (3)
  - Drug interaction [Unknown]
  - Anticoagulation drug level below therapeutic [Unknown]
  - Thrombosis [Recovered/Resolved]
